FAERS Safety Report 11503040 (Version 1)
Quarter: 2015Q3

REPORT INFORMATION
  Report Type: Spontaneous
  Country: US (occurrence: US)
  Receive Date: 20150914
  Receipt Date: 20150914
  Transmission Date: 20151125
  Serious: No
  Sender: FDA-Public Use
  Company Number: US-ASTELLAS-2015US023980

PATIENT
  Sex: Male

DRUGS (1)
  1. XTANDI [Suspect]
     Active Substance: ENZALUTAMIDE
     Indication: PROSTATE CANCER
     Dosage: 160 MG (40 MG X 4 CAPSULES), ONCE DAILY
     Route: 048
     Dates: start: 20150610

REACTIONS (8)
  - Nausea [Unknown]
  - Back pain [Unknown]
  - Arthropathy [Unknown]
  - Drug dose omission [Unknown]
  - Hyperhidrosis [Unknown]
  - Vomiting [Unknown]
  - Hot flush [Unknown]
  - Hypoaesthesia oral [Unknown]
